FAERS Safety Report 8186832-5 (Version None)
Quarter: 2012Q1

REPORT INFORMATION
  Report Type: 
  Country: None (occurrence: None)
  Receive Date: 20120301
  Receipt Date: 20120216
  Transmission Date: 20120608
  Serious: Yes (Hospitalization)
  Sender: FDA-Public Use
  Company Number: KR-JNJFOC-20111013020

PATIENT
  Age: 77 Year
  Sex: Male
  Weight: 58 kg

DRUGS (42)
  1. SPORANOX [Concomitant]
  2. TARGOCID [Concomitant]
  3. COLCHICINE [Concomitant]
  4. TYLENOL ER (PARACETAMOL) [Concomitant]
  5. MUCOMYST [Concomitant]
  6. TRANEXAMIC ACID [Concomitant]
  7. KALIMATE GRANULES (CALCIUM POLYSTYRENE SULFONATE) [Concomitant]
  8. GANATON (ITOPRIDE HYDROCHLORIDE) [Concomitant]
  9. TAMSULOSIN HCL [Concomitant]
  10. CIMETIDINE [Concomitant]
  11. GRASIN (FILGRASTIM) [Concomitant]
  12. FEROBA YOU SR (FERROUS SULFATE) [Concomitant]
  13. MUCOSTA (REBAMIPIDE) [Concomitant]
  14. BACTRIM [Concomitant]
  15. EXOPERIN (EPERISONE) [Concomitant]
  16. FAMOTIDINE [Concomitant]
  17. METHYLON (METHYLPREDNISOLONE) [Concomitant]
  18. EXJADE [Concomitant]
  19. MEIACT (CEFDITOREN PIVOXIL) [Concomitant]
  20. GLOBULIN-S (NORMAL HUMAN IMMUNOGLOBULIN) [Concomitant]
  21. RECOMIDE (REBAMIPIDE) [Concomitant]
  22. MAXIPIME [Concomitant]
  23. NORZYME (PANCREATIN) [Concomitant]
  24. ULTRACET [Concomitant]
  25. Q-ZYME (DIGESTIVES, INCL ENZYMES) [Concomitant]
  26. ATROVENT UDV (IPRATROPIUM BROMIDE) [Concomitant]
  27. MACPERAN (METOCLOPRAMIDE HYDROCHLORIDE) [Concomitant]
  28. MAGNESIUM OXIDE [Concomitant]
  29. ALLOPURINOL [Concomitant]
  30. FLUCONAZOLE [Concomitant]
  31. MAGNESIUM [Concomitant]
  32. DACOGEN [Suspect]
     Indication: MYELODYSPLASTIC SYNDROME
     Dosage: 20 MG/M2, 1 IN 1 DAY, INTRAVENOUS
     Route: 042
     Dates: start: 20111105, end: 20111109
  33. DACOGEN [Suspect]
     Indication: MYELODYSPLASTIC SYNDROME
     Dosage: 20 MG/M2, 1 IN 1 DAY, INTRAVENOUS
     Route: 042
     Dates: start: 20111010, end: 20111010
  34. DACOGEN [Suspect]
     Indication: MYELODYSPLASTIC SYNDROME
     Dosage: 20 MG/M2, 1 IN 1 DAY, INTRAVENOUS
     Route: 042
     Dates: start: 20111005, end: 20111008
  35. DANAZOL [Concomitant]
  36. LEGALON (SILYBUM MARIANUM) [Concomitant]
  37. ALBUMIN (HUMAN) [Concomitant]
  38. LEVOBACT (LEVOFLOXACIN) [Concomitant]
  39. MACPERAN (METOCLOPRAMIDE HYDROCHLORIDE) [Concomitant]
  40. ADCAL (LEKOVIT CA) [Concomitant]
  41. FLOMAX [Concomitant]
  42. LASIX [Concomitant]

REACTIONS (7)
  - ASTHENIA [None]
  - LOBAR PNEUMONIA [None]
  - CORONARY ARTERY STENOSIS [None]
  - CORONARY ARTERY OCCLUSION [None]
  - ANTIBIOTIC RESISTANT STAPHYLOCOCCUS TEST POSITIVE [None]
  - DECREASED APPETITE [None]
  - COLITIS [None]
